FAERS Safety Report 11705045 (Version 1)
Quarter: 2015Q4

REPORT INFORMATION
  Report Type: Spontaneous
  Country: US (occurrence: US)
  Receive Date: 20151106
  Receipt Date: 20151106
  Transmission Date: 20160304
  Serious: Yes (Other)
  Sender: FDA-Public Use
  Company Number: US-PFIZER INC-2015354650

PATIENT
  Age: 56 Year
  Sex: Female
  Weight: 57 kg

DRUGS (6)
  1. CODEINE [Concomitant]
     Active Substance: CODEINE
     Indication: HEADACHE
  2. VALIUM [Concomitant]
     Active Substance: DIAZEPAM
     Dosage: ONE VALIUM EVERY THREE TO FIVE DAYS
  3. ASPIRIN. [Concomitant]
     Active Substance: ASPIRIN
     Indication: HEADACHE
  4. PHENOBARBITAL. [Concomitant]
     Active Substance: PHENOBARBITAL
     Indication: HEADACHE
  5. PRIMATENE [Suspect]
     Active Substance: EPHEDRINE HYDROCHLORIDE\GUAIFENESIN
     Dosage: TOOK TWO IN THE MORNING AND AT NIGHT, TOOK TWO MORE
     Dates: start: 20151017, end: 20151018
  6. PRIMATENE [Suspect]
     Active Substance: EPHEDRINE HYDROCHLORIDE\GUAIFENESIN
     Indication: ASTHMA
     Dosage: 2 DF, 2X/DAY
     Dates: start: 20151016, end: 20151016

REACTIONS (10)
  - Expired product administered [Recovered/Resolved]
  - Pallor [Unknown]
  - Cardiac arrest [Unknown]
  - Heart rate increased [Recovering/Resolving]
  - Lack of spontaneous speech [Recovered/Resolved]
  - Feeling abnormal [Recovered/Resolved]
  - Dyspnoea [Recovering/Resolving]
  - Blood pressure increased [Recovering/Resolving]
  - Lung disorder [Unknown]
  - Chest discomfort [Unknown]

NARRATIVE: CASE EVENT DATE: 20151016
